FAERS Safety Report 16272485 (Version 6)
Quarter: 2019Q2

REPORT INFORMATION
  Report Type: Spontaneous
  Country: US (occurrence: US)
  Receive Date: 20190503
  Receipt Date: 20190617
  Transmission Date: 20190711
  Serious: Yes (Hospitalization)
  Sender: FDA-Public Use
  Company Number: US-ACTELION-A-NJ2019-189701

PATIENT
  Sex: Male
  Weight: 109.3 kg

DRUGS (4)
  1. SILDENAFIL. [Concomitant]
     Active Substance: SILDENAFIL
  2. OPSUMIT [Suspect]
     Active Substance: MACITENTAN
     Indication: PULMONARY ARTERIAL HYPERTENSION
     Dosage: 10 MG
     Route: 048
  3. UPTRAVI [Suspect]
     Active Substance: SELEXIPAG
     Indication: PULMONARY ARTERIAL HYPERTENSION
     Dosage: 200 MCG, BID
     Route: 048
  4. UPTRAVI [Suspect]
     Active Substance: SELEXIPAG
     Dosage: 400 MCG, BID
     Route: 048

REACTIONS (10)
  - Renal disorder [Recovering/Resolving]
  - Dyspnoea [Unknown]
  - Blood count abnormal [Unknown]
  - Malaise [Recovering/Resolving]
  - Asthenia [Unknown]
  - Weight decreased [Unknown]
  - Fluid retention [Unknown]
  - Fatigue [Unknown]
  - Cardiac disorder [Recovering/Resolving]
  - Oxygen saturation decreased [Unknown]
